FAERS Safety Report 21742820 (Version 1)
Quarter: 2022Q4

REPORT INFORMATION
  Report Type: Report from Study
  Country: US (occurrence: US)
  Receive Date: 20221217
  Receipt Date: 20221217
  Transmission Date: 20230113
  Serious: No
  Sender: FDA-Public Use
  Company Number: US-ABBVIE-4240367

PATIENT
  Sex: Female

DRUGS (2)
  1. VENCLEXTA [Suspect]
     Active Substance: VENETOCLAX
     Indication: Neoplasm
     Dosage: TAKE 1 TABLET BY MOUTH DAILY FOR 1 DAY?FORM STREGTH- 100 MG
     Route: 048
  2. VENCLEXTA [Suspect]
     Active Substance: VENETOCLAX
     Indication: Neoplasm
     Dosage: THEN TAKE 2 TABLET(S) BY MOUTH DAILY FOR 13 DAYS THEN 14 DAYS OFF
     Route: 048

REACTIONS (1)
  - Product prescribing error [Unknown]
